FAERS Safety Report 5477391-6 (Version None)
Quarter: 2007Q4

REPORT INFORMATION
  Report Type: 
  Country: None (occurrence: None)
  Receive Date: 20071001
  Receipt Date: 20070926
  Transmission Date: 20080405
  Serious: Yes (Death)
  Sender: FDA-Public Use
  Company Number: 2006SP008895

PATIENT
  Age: 83 Year
  Sex: Male
  Weight: 41 kg

DRUGS (6)
  1. TEMODAL [Suspect]
     Indication: GLIOBLASTOMA MULTIFORME
     Dosage: 150 MG/M2;QD;PO
     Route: 048
     Dates: start: 20060920, end: 20060924
  2. PREDONINE [Concomitant]
  3. FAMOTIDINE [Concomitant]
  4. MUCOSTA [Concomitant]
  5. AMINO ACIDS/CARBOHYDRATES/MINERALS/VITAMINS [Concomitant]
  6. PENTCILLIN [Concomitant]

REACTIONS (7)
  - ANOREXIA [None]
  - DECREASED ACTIVITY [None]
  - FUNGAL INFECTION [None]
  - OPPORTUNISTIC INFECTION [None]
  - ORAL INTAKE REDUCED [None]
  - PNEUMONIA [None]
  - RESPIRATORY FAILURE [None]
